FAERS Safety Report 6095185-8 (Version None)
Quarter: 2009Q1

REPORT INFORMATION
  Report Type: 
  Country: None (occurrence: None)
  Receive Date: 20090227
  Receipt Date: 20080229
  Transmission Date: 20090719
  Serious: Yes (Other)
  Sender: FDA-Public Use
  Company Number: A0708125A

PATIENT
  Age: 55 Year
  Sex: Male
  Weight: 65.9 kg

DRUGS (2)
  1. LAMICTAL [Suspect]
     Indication: BIPOLAR DISORDER
     Dosage: 200MG PER DAY
     Route: 048
     Dates: start: 20061201
  2. CYTOMEL [Concomitant]
     Indication: THYROIDITIS
     Dosage: 25MG PER DAY
     Dates: start: 20030301

REACTIONS (1)
  - DEPRESSION [None]
